FAERS Safety Report 7178470-8 (Version None)
Quarter: 2010Q4

REPORT INFORMATION
  Report Type: 
  Country: None (occurrence: None)
  Receive Date: 20101220
  Receipt Date: 20101027
  Transmission Date: 20110411
  Serious: Yes (Hospitalization)
  Sender: FDA-Public Use
  Company Number: JP-MERCK-1011USA00069

PATIENT
  Age: 66 Year
  Sex: Female

DRUGS (2)
  1. SINEMET [Suspect]
     Indication: PARKINSON'S DISEASE
     Route: 048
  2. SELEGILINE HYDROCHLORIDE [Concomitant]
     Route: 048

REACTIONS (5)
  - BLOOD CREATINE PHOSPHOKINASE INCREASED [None]
  - DYSKINESIA [None]
  - GAIT DISTURBANCE [None]
  - MUSCLE RIGIDITY [None]
  - PYREXIA [None]
